FAERS Safety Report 5131861-9 (Version None)
Quarter: 2006Q4

REPORT INFORMATION
  Report Type: 
  Country: None (occurrence: None)
  Receive Date: 20061016
  Receipt Date: 20061005
  Transmission Date: 20070319
  Serious: Yes (Disabling, Other)
  Sender: FDA-Public Use
  Company Number: 2006124314

PATIENT
  Sex: Female

DRUGS (1)
  1. LIPITOR [Suspect]

REACTIONS (4)
  - DRUG INEFFECTIVE [None]
  - FALL [None]
  - MUSCLE DISORDER [None]
  - MUSCULOSKELETAL DISORDER [None]
